FAERS Safety Report 8210140-7 (Version None)
Quarter: 2012Q1

REPORT INFORMATION
  Report Type: 
  Country: None (occurrence: None)
  Receive Date: 20120314
  Receipt Date: 20120117
  Transmission Date: 20120608
  Serious: No
  Sender: FDA-Public Use
  Company Number: US-ASTRAZENECA-2011SE45736

PATIENT
  Age: 69 Year
  Sex: Male
  Weight: 119.7 kg

DRUGS (5)
  1. TOPROL-XL [Suspect]
     Route: 048
  2. LISINOPRIL [Concomitant]
  3. CRESTOR [Suspect]
     Route: 048
  4. PRAVASTATIN [Concomitant]
  5. METOPROLOL TARTRATE [Concomitant]

REACTIONS (3)
  - DEAFNESS [None]
  - DRUG DOSE OMISSION [None]
  - SLUGGISHNESS [None]
